FAERS Safety Report 23320053 (Version 1)
Quarter: 2023Q4

REPORT INFORMATION
  Report Type: Spontaneous
  Country: CN (occurrence: CN)
  Receive Date: 20231220
  Receipt Date: 20231220
  Transmission Date: 20240109
  Serious: Yes (Hospitalization, Other)
  Sender: FDA-Public Use
  Company Number: CN-SA-2023SA386824

PATIENT
  Age: 30 Year
  Sex: Male

DRUGS (7)
  1. ENOXAPARIN SODIUM [Suspect]
     Active Substance: ENOXAPARIN SODIUM
     Indication: Portal vein thrombosis
     Dosage: 40 MG, Q12H
     Route: 058
     Dates: start: 20230329, end: 20230404
  2. ENOXAPARIN SODIUM [Suspect]
     Active Substance: ENOXAPARIN SODIUM
     Indication: Splenic vein thrombosis
     Dosage: 60 MG, Q12H
     Route: 058
     Dates: start: 20230405, end: 20230410
  3. ENOXAPARIN SODIUM [Suspect]
     Active Substance: ENOXAPARIN SODIUM
     Indication: Mesenteric vein thrombosis
     Dosage: 40 MG, Q12H
     Route: 058
     Dates: start: 20230413, end: 20230415
  4. ENOXAPARIN SODIUM [Suspect]
     Active Substance: ENOXAPARIN SODIUM
     Dosage: 70 MG, Q12H
     Route: 058
     Dates: start: 20230416
  5. RIVAROXABAN [Suspect]
     Active Substance: RIVAROXABAN
     Indication: Portal vein thrombosis
     Dosage: UNK
     Route: 048
  6. RIVAROXABAN [Suspect]
     Active Substance: RIVAROXABAN
     Indication: Splenic vein thrombosis
     Dosage: 20 MG, QD
     Route: 048
  7. RIVAROXABAN [Suspect]
     Active Substance: RIVAROXABAN
     Indication: Mesenteric vein thrombosis

REACTIONS (8)
  - Shock haemorrhagic [Recovered/Resolved]
  - Splenic rupture [Recovered/Resolved]
  - Haematemesis [Recovered/Resolved]
  - Shock [Recovered/Resolved]
  - Oesophageal varices haemorrhage [Recovered/Resolved]
  - Gastric varices haemorrhage [Recovered/Resolved]
  - Upper gastrointestinal haemorrhage [Recovered/Resolved]
  - Haematoma [Recovered/Resolved]
